FAERS Safety Report 21937416 (Version 1)
Quarter: 2023Q1

REPORT INFORMATION
  Report Type: Spontaneous
  Country: US (occurrence: US)
  Receive Date: 20230201
  Receipt Date: 20230201
  Transmission Date: 20230418
  Serious: Yes (Other)
  Sender: FDA-Public Use
  Company Number: US-BRISTOL-MYERS SQUIBB COMPANY-2023-013783

PATIENT
  Age: 70 Year
  Sex: Female

DRUGS (1)
  1. POMALYST [Suspect]
     Active Substance: POMALIDOMIDE
     Indication: Metastases to bone
     Dosage: FREQUENCY- TAKE 1 CAPSULE BY MOUTH DAILY ON MONDAY, WEDNESDAY, AND FRIDAY FOR 3 WEEKS ON THEN 1 WEEK
     Route: 048

REACTIONS (5)
  - Depression [Recovered/Resolved]
  - Foot fracture [Recovered/Resolved]
  - Muscle spasms [Recovered/Resolved]
  - Sinusitis [Recovered/Resolved]
  - Off label use [Unknown]
